FAERS Safety Report 7984178-9 (Version None)
Quarter: 2011Q4

REPORT INFORMATION
  Report Type: 
  Country: None (occurrence: None)
  Receive Date: 20111216
  Receipt Date: 20111205
  Transmission Date: 20120403
  Serious: Yes (Hospitalization, Other)
  Sender: FDA-Public Use
  Company Number: US-VERTEX PHARMACEUTICALS INC.-AE-2011-004493

PATIENT
  Sex: Female
  Weight: 95.5 kg

DRUGS (7)
  1. ATENOLOL [Concomitant]
     Indication: BLOOD PRESSURE
     Route: 048
     Dates: end: 20111204
  2. LISINOPRIL [Concomitant]
     Indication: BLOOD PRESSURE
     Route: 048
     Dates: end: 20111204
  3. AMLODIPINE [Concomitant]
     Indication: BLOOD PRESSURE
     Route: 048
     Dates: end: 20111204
  4. PEGASYS [Concomitant]
     Indication: HEPATITIS C
     Dates: start: 20111111
  5. MOTRIN [Concomitant]
     Indication: INFLUENZA LIKE ILLNESS
     Route: 048
  6. RIBAVIRIN [Concomitant]
     Indication: HEPATITIS C
     Route: 048
     Dates: start: 20111111, end: 20111209
  7. INCIVEK [Suspect]
     Indication: HEPATITIS C
     Route: 048
     Dates: start: 20111111

REACTIONS (7)
  - RASH [None]
  - HAEMATOCRIT DECREASED [None]
  - HYPOTENSION [None]
  - FATIGUE [None]
  - TACHYCARDIA [None]
  - DIZZINESS [None]
  - DYSPNOEA [None]
